FAERS Safety Report 9212260 (Version 2)
Quarter: 2013Q4

REPORT INFORMATION
  Report Type: Spontaneous
  Country: US (occurrence: US)
  Receive Date: 20130404
  Receipt Date: 20131202
  Transmission Date: 20140711
  Serious: No
  Sender: FDA-Public Use
  Company Number: US-AMGEN-USASP2013018171

PATIENT
  Age: 53 Year
  Sex: Female

DRUGS (1)
  1. ENBREL [Suspect]
     Indication: RHEUMATOID ARTHRITIS
     Dosage: 50 MG, QWK
     Route: 065
     Dates: start: 20130228, end: 20130315

REACTIONS (8)
  - Miliaria [Not Recovered/Not Resolved]
  - Injection site streaking [Recovered/Resolved]
  - Injection site erythema [Recovered/Resolved]
  - Injection site swelling [Recovered/Resolved]
  - Injection site pruritus [Not Recovered/Not Resolved]
  - Injection site reaction [Recovered/Resolved]
  - Injection site warmth [Recovered/Resolved]
  - Injection site hypersensitivity [Recovered/Resolved]
